FAERS Safety Report 4685145-3 (Version None)
Quarter: 2005Q2

REPORT INFORMATION
  Report Type: 
  Country: None (occurrence: None)
  Receive Date: 20050603
  Receipt Date: 20050519
  Transmission Date: 20051028
  Serious: Yes (Death)
  Sender: FDA-Public Use
  Company Number: 214637

PATIENT
  Sex: Female
  Weight: 104.5 kg

DRUGS (11)
  1. RITUXIMAB (RITUXIMAB) CONC FOR SOLUTION FOR INFUSION [Suspect]
     Indication: RHEUMATOID ARTHRITIS
     Dosage: 1000 MG, DAYS 1+15, INTRAVENOUS
     Route: 042
     Dates: start: 20040527, end: 20040609
  2. METHYLPREDNISOLONE [Suspect]
     Indication: RHEUMATOID ARTHRITIS
     Dosage: 100 MG, DAYS 1+15, INTRAVENOUS
     Route: 042
     Dates: start: 20040527, end: 20040609
  3. PREDNISONE [Suspect]
     Indication: RHEUMATOID ARTHRITIS
     Dosage: ORAL
     Route: 048
     Dates: start: 20040128, end: 20040209
  4. METHOTREXATE [Concomitant]
  5. PREDNISONE [Concomitant]
  6. FOLIC ACID [Concomitant]
  7. GLUCOPHAGE [Concomitant]
  8. HUMULIN NPH (NPH HUMAN INSULIN ISOPHANE SUSPENSION) [Concomitant]
  9. ENALADEX (ENALAPRIL MALEATE) [Concomitant]
  10. ALGOLYSIN (ACETAMINOPHEN, PROPOXYPHENE HYDROCHLORIDE) [Concomitant]
  11. ELATROL (AMITRIPTYLINE HYDROCHLORIDE) [Concomitant]

REACTIONS (2)
  - ASTHENIA [None]
  - NON-CARDIAC CHEST PAIN [None]
